FAERS Safety Report 6015608-X (Version None)
Quarter: 2008Q4

REPORT INFORMATION
  Report Type: 
  Country: None (occurrence: None)
  Receive Date: 20081222
  Receipt Date: 20081216
  Transmission Date: 20090506
  Serious: Yes (Other)
  Sender: FDA-Public Use
  Company Number: US-ALLERGAN-0810959US

PATIENT
  Sex: Male

DRUGS (6)
  1. PREDNISOLONE ACETATE [Suspect]
     Indication: IRIDOCYCLITIS
     Dosage: UNK, Q2HR
     Route: 047
  2. PREDNISOLONE ACETATE [Suspect]
     Indication: UVEITIS
  3. PREDNISOLONE ACETATE [Suspect]
     Indication: VITRITIS
  4. METHYLPREDNISOLONE ACETATE [Suspect]
     Indication: CHOROIDITIS
     Dosage: 80 MG, Q 6 WKS
     Route: 050
  5. CYCLOPENTOLATE HYDROCHLORIDE [Concomitant]
     Indication: IRIDOCYCLITIS
     Dosage: UNK, Q6HR
     Route: 047
  6. CYCLOPENTOLATE HYDROCHLORIDE [Concomitant]
     Indication: VITRITIS

REACTIONS (11)
  - ACANTHOSIS NIGRICANS [None]
  - ADRENAL SUPPRESSION [None]
  - BLOOD CORTISOL DECREASED [None]
  - CATARACT SUBCAPSULAR [None]
  - CENTRAL OBESITY [None]
  - CHOROIDITIS [None]
  - CUSHING'S SYNDROME [None]
  - DRUG INEFFECTIVE [None]
  - GROWTH RETARDATION [None]
  - HAIR GROWTH ABNORMAL [None]
  - INTRAOCULAR PRESSURE INCREASED [None]
